FAERS Safety Report 25618709 (Version 2)
Quarter: 2025Q3

REPORT INFORMATION
  Report Type: Spontaneous
  Country: IL (occurrence: IL)
  Receive Date: 20250729
  Receipt Date: 20250804
  Transmission Date: 20251021
  Serious: No
  Sender: NOVARTIS
  Company Number: IL-002147023-NVSC2025IL117763

PATIENT
  Sex: Male

DRUGS (2)
  1. LEQVIO [Suspect]
     Active Substance: INCLISIRAN SODIUM
     Indication: Low density lipoprotein increased
     Route: 065
     Dates: start: 202502
  2. LEQVIO [Suspect]
     Active Substance: INCLISIRAN SODIUM
     Route: 065
     Dates: start: 202506

REACTIONS (8)
  - Gastrointestinal disorder [Unknown]
  - Carbohydrate tolerance increased [Unknown]
  - Chest pain [Unknown]
  - Fatigue [Unknown]
  - Confusional state [Unknown]
  - Headache [Unknown]
  - Motor dysfunction [Unknown]
  - Serum ferritin decreased [Unknown]
